FAERS Safety Report 9354152 (Version 3)
Quarter: 2013Q3

REPORT INFORMATION
  Report Type: Spontaneous
  Country: US (occurrence: US)
  Receive Date: 20130618
  Receipt Date: 20130718
  Transmission Date: 20140515
  Serious: Yes (Other)
  Sender: FDA-Public Use
  Company Number: US-GLAXOSMITHKLINE-A1027352A

PATIENT
  Age: 43 Year
  Sex: Female

DRUGS (1)
  1. FLOLAN [Suspect]
     Indication: PULMONARY ARTERIAL HYPERTENSION
     Dosage: 9NGKM CONTINUOUS
     Route: 042
     Dates: start: 20130606

REACTIONS (14)
  - Urinary retention [Unknown]
  - Back pain [Unknown]
  - Fatigue [Unknown]
  - Headache [Unknown]
  - Pain in extremity [Unknown]
  - Nausea [Unknown]
  - Rash [Unknown]
  - Abdominal pain upper [Unknown]
  - Pain in jaw [Unknown]
  - Oedema [Unknown]
  - Gait disturbance [Unknown]
  - Asthenia [Unknown]
  - Pyrexia [Unknown]
  - Heart rate increased [Unknown]
